FAERS Safety Report 5654365-3 (Version None)
Quarter: 2008Q1

REPORT INFORMATION
  Report Type: 
  Country: None (occurrence: None)
  Receive Date: 20080305
  Receipt Date: 20080220
  Transmission Date: 20080703
  Serious: Yes (Other)
  Sender: FDA-Public Use
  Company Number: 231425J07USA

PATIENT
  Age: 20 Year
  Sex: Female
  Weight: 52.1637 kg

DRUGS (5)
  1. REBIF [Suspect]
     Indication: MULTIPLE SCLEROSIS
     Dosage: 44 MCG, 3 IN 1 WEEKS, SUBCUTANEOUS
     Route: 058
     Dates: start: 20070801
  2. ATIVAN [Suspect]
     Dates: start: 20071201, end: 20071201
  3. FLEXERIL [Suspect]
     Dates: start: 20071201, end: 20071201
  4. DOXAZOSIN MESYLATE [Concomitant]
  5. KEFLEX [Concomitant]

REACTIONS (5)
  - ANXIETY [None]
  - CYSTITIS [None]
  - EPILEPSY [None]
  - FOAMING AT MOUTH [None]
  - GAIT DISTURBANCE [None]
